FAERS Safety Report 7450900-3 (Version None)
Quarter: 2011Q2

REPORT INFORMATION
  Report Type: 
  Country: None (occurrence: None)
  Receive Date: 20110422
  Receipt Date: 20110411
  Transmission Date: 20111010
  Serious: Yes (Death)
  Sender: FDA-Public Use
  Company Number: US-2011-10172

PATIENT
  Age: 65 Year
  Sex: Male

DRUGS (17)
  1. NEUTROGIN (LENOGRASTIM) [Concomitant]
  2. URSO 250 [Concomitant]
  3. SOLDACTONE (POTASSIUM CANRENOATE) [Concomitant]
  4. BUSULFAN [Suspect]
     Indication: STEM CELL TRANSPLANT
     Dosage: 45 MG MILLIGRAM(S), DROP, 45 MG MILLIGRAM9S), QID,
     Dates: start: 20071104, end: 20071107
  5. CELLCEPT [Concomitant]
  6. EPADEL (EICOSAPENTAENOIC ACID ETHYLESTER) [Concomitant]
  7. FILGRASTIM [Concomitant]
  8. MAXIPIME [Concomitant]
  9. OMEGACIN (BIAPENEM) [Concomitant]
  10. HIBON (RIBOFLAVIN TETRABUTYRATE) [Concomitant]
  11. GASTLER (FAMOTIDINE) [Concomitant]
  12. CYCLOSPORINE [Suspect]
     Indication: IMMUNOSUPPRESSION
     Dosage: 100 MG MILLIGRAM(S), BID; INTRAVENOUS
     Route: 042
     Dates: start: 20011108, end: 20071205
  13. FLUDARA [Concomitant]
  14. ZOVIRAX [Concomitant]
  15. DIFLUCAN [Concomitant]
  16. NEUQUINON (UBIDECARENONE) [Concomitant]
  17. G-CSF-PRIMING-ARA-C [Concomitant]

REACTIONS (8)
  - VENOOCCLUSIVE LIVER DISEASE [None]
  - ILEUS PARALYTIC [None]
  - STEM CELL TRANSPLANT [None]
  - BLOOD PRESSURE DECREASED [None]
  - BLOOD BILIRUBIN INCREASED [None]
  - THROMBOTIC MICROANGIOPATHY [None]
  - ABDOMINAL DISTENSION [None]
  - MELAENA [None]
